FAERS Safety Report 10969712 (Version 2)
Quarter: 2015Q2

REPORT INFORMATION
  Report Type: Spontaneous
  Country: JP (occurrence: None)
  Receive Date: 20150327
  Receipt Date: 20150424
  Transmission Date: 20150821
  Serious: Yes (Other)
  Sender: FDA-Public Use
  Company Number: ABR_02118_2015

PATIENT
  Age: 60 Year
  Sex: Male

DRUGS (1)
  1. GLIADEL [Suspect]
     Active Substance: CARMUSTINE
     Indication: MALIGNANT GLIOMA
     Dosage: INTRACEREBRAL
     Dates: start: 20140703

REACTIONS (2)
  - Brain oedema [None]
  - Pneumocephalus [None]
